FAERS Safety Report 14194397 (Version 2)
Quarter: 2017Q4

REPORT INFORMATION
  Report Type: Spontaneous
  Country: US (occurrence: US)
  Receive Date: 20171116
  Receipt Date: 20171121
  Transmission Date: 20180321
  Serious: Yes (Other)
  Sender: FDA-Public Use
  Company Number: US-PFIZER INC-2017493158

PATIENT
  Age: 46 Year
  Sex: Female

DRUGS (1)
  1. XELJANZ [Suspect]
     Active Substance: TOFACITINIB CITRATE
     Dosage: 5 MG, UNK
     Dates: start: 201405

REACTIONS (3)
  - Ear infection [Unknown]
  - Sinusitis [Unknown]
  - Menorrhagia [Unknown]
